FAERS Safety Report 15582251 (Version 2)
Quarter: 2019Q1

REPORT INFORMATION
  Report Type: Spontaneous
  Country: US (occurrence: US)
  Receive Date: 20181102
  Receipt Date: 20190207
  Transmission Date: 20190417
  Serious: No
  Sender: FDA-Public Use
  Company Number: US-RADIUS HEALTH INC.-2018US002551

PATIENT
  Age: 76 Year
  Sex: Female

DRUGS (1)
  1. TYMLOS [Suspect]
     Active Substance: ABALOPARATIDE
     Indication: OSTEOPOROSIS POSTMENOPAUSAL
     Dosage: 80 MCG, QD
     Route: 058
     Dates: start: 20181002, end: 201810

REACTIONS (4)
  - Headache [Recovering/Resolving]
  - Musculoskeletal discomfort [Recovering/Resolving]
  - Product dose omission [Recovering/Resolving]
  - Head discomfort [Unknown]

NARRATIVE: CASE EVENT DATE: 20181002
